FAERS Safety Report 10430089 (Version 1)
Quarter: 2014Q3

REPORT INFORMATION
  Report Type: Spontaneous
  Country: US (occurrence: None)
  Receive Date: 20140902
  Receipt Date: 20140902
  Transmission Date: 20150326
  Serious: Yes (Hospitalization)
  Sender: FDA-Public Use
  Company Number: None

PATIENT
  Age: 67 Year
  Sex: Male
  Weight: 76.25 kg

DRUGS (3)
  1. METFORMIN [Suspect]
     Active Substance: METFORMIN HYDROCHLORIDE
  2. PREDNISONE. [Concomitant]
     Active Substance: PREDNISONE
     Dates: end: 20140825
  3. ABIRATERONE ACETATE [Concomitant]
     Active Substance: ABIRATERONE ACETATE
     Dates: end: 20140825

REACTIONS (16)
  - Contusion [None]
  - Dizziness [None]
  - Blood glucose increased [None]
  - Hypertension [None]
  - Fall [None]
  - Head injury [None]
  - Presyncope [None]
  - Hypokalaemia [None]
  - Atelectasis [None]
  - Diarrhoea [None]
  - Pleural effusion [None]
  - Haemoglobin decreased [None]
  - Musculoskeletal chest pain [None]
  - Tenderness [None]
  - Blood creatinine increased [None]
  - Balance disorder [None]

NARRATIVE: CASE EVENT DATE: 20140825
